FAERS Safety Report 4405871-0 (Version None)
Quarter: 2004Q3

REPORT INFORMATION
  Report Type: 
  Country: None (occurrence: None)
  Receive Date: 20040723
  Receipt Date: 20040123
  Transmission Date: 20050211
  Serious: No
  Sender: FDA-Public Use
  Company Number: US-GLAXOSMITHKLINE-A0495052A

PATIENT
  Age: 67 Year
  Sex: Male

DRUGS (3)
  1. AVANDIA [Suspect]
     Dosage: 4MG PER DAY
     Route: 048
  2. QUININE SULFATE [Suspect]
     Route: 048
  3. LIPITOR [Concomitant]

REACTIONS (5)
  - CHILLS [None]
  - DRUG INTERACTION [None]
  - PYREXIA [None]
  - TREMOR [None]
  - VOMITING [None]
